FAERS Safety Report 5493437-3 (Version None)
Quarter: 2007Q4

REPORT INFORMATION
  Report Type: 
  Country: None (occurrence: None)
  Receive Date: 20071022
  Receipt Date: 20071022
  Transmission Date: 20080405
  Serious: Yes (Other)
  Sender: FDA-Public Use
  Company Number: None

PATIENT
  Age: 35 Year
  Sex: Female
  Weight: 58.9676 kg

DRUGS (1)
  1. NAPROXEN [Suspect]
     Indication: ANTIINFLAMMATORY THERAPY
     Dosage: 4 TIMES DAILY FOR 2 YRS 4 TIMES DAILY PO
     Route: 048
     Dates: start: 20010601, end: 20061101

REACTIONS (2)
  - GASTRIC ULCER [None]
  - GASTROINTESTINAL DISORDER [None]
